FAERS Safety Report 6265879-X (Version None)
Quarter: 2009Q3

REPORT INFORMATION
  Report Type: 
  Country: None (occurrence: None)
  Receive Date: 20090713
  Receipt Date: 20090629
  Transmission Date: 20100115
  Serious: Yes (Hospitalization)
  Sender: FDA-Public Use
  Company Number: FR-GILEAD-2008-0015144

PATIENT
  Sex: Male
  Weight: 57 kg

DRUGS (7)
  1. TRUVADA [Suspect]
     Indication: HIV INFECTION
     Route: 048
     Dates: start: 20071227
  2. SUSTIVA [Suspect]
     Indication: HIV INFECTION
     Route: 048
     Dates: start: 20071227
  3. RIFATER [Concomitant]
     Indication: TUBERCULOSIS
     Route: 048
     Dates: start: 20071123
  4. VITAMIN B6 [Concomitant]
     Indication: PROPHYLAXIS
     Route: 048
     Dates: start: 20071227
  5. BACTRIM [Concomitant]
     Indication: ANTIFUNGAL PROPHYLAXIS
     Route: 048
     Dates: start: 20071123
  6. MYAMBUTOL [Concomitant]
     Dates: start: 20071123, end: 20080117
  7. TARDYFERON [Concomitant]
     Indication: IRON DEFICIENCY ANAEMIA
     Route: 048
     Dates: start: 20080610

REACTIONS (4)
  - GENERAL PHYSICAL CONDITION ABNORMAL [None]
  - IMMUNE RECONSTITUTION SYNDROME [None]
  - LUNG DISORDER [None]
  - LYMPHADENOPATHY [None]
